FAERS Safety Report 10565186 (Version 5)
Quarter: 2015Q1

REPORT INFORMATION
  Report Type: Spontaneous
  Country: JP (occurrence: JP)
  Receive Date: 20141105
  Receipt Date: 20150304
  Transmission Date: 20150720
  Serious: Yes (Other)
  Sender: FDA-Public Use
  Company Number: JP-ROCHE-1485900

PATIENT
  Age: 38 Year
  Sex: Female

DRUGS (7)
  1. DEOXYSPERGUALIN [Concomitant]
  2. GUSPERIMUS HYDROCHLORIDE [Concomitant]
  3. RITUXAN [Suspect]
     Active Substance: RITUXIMAB
     Indication: RENAL TRANSPLANT
     Route: 042
  4. EVEROLIMUS [Concomitant]
     Active Substance: EVEROLIMUS
     Indication: RENAL TRANSPLANT
     Dosage: DOSAGE UNCERTAIN.
     Route: 065
  5. THYMOGLOBULIN [Concomitant]
     Active Substance: LAPINE T-LYMPHOCYTE IMMUNE GLOBULIN
  6. CELLCEPT [Suspect]
     Active Substance: MYCOPHENOLATE MOFETIL\MYCOPHENOLATE MOFETIL HYDROCHLORIDE
     Indication: RENAL TRANSPLANT
     Dosage: DOSAGE UNCERTAIN.
     Route: 048
  7. TACROLIMUS HYDRATE [Concomitant]
     Active Substance: TACROLIMUS
     Indication: RENAL TRANSPLANT
     Dosage: DOSAGE UNCERTAIN.
     Route: 065

REACTIONS (2)
  - Bacterial infection [Unknown]
  - Thrombotic microangiopathy [Unknown]
